FAERS Safety Report 19182018 (Version 2)
Quarter: 2021Q2

REPORT INFORMATION
  Report Type: Spontaneous
  Country: FR (occurrence: FR)
  Receive Date: 20210427
  Receipt Date: 20210504
  Transmission Date: 20210717
  Serious: Yes (Life-Threatening, Other)
  Sender: FDA-Public Use
  Company Number: FR-AUROBINDO-AUR-APL-2021-016172

PATIENT
  Age: 88 Year
  Sex: Female
  Weight: 43.6 kg

DRUGS (1)
  1. LAMOTRIGINE ARROW [Suspect]
     Active Substance: LAMOTRIGINE
     Indication: EPILEPSY
     Dosage: 125 MILLIGRAM
     Route: 048
     Dates: start: 20210308, end: 20210329

REACTIONS (5)
  - Behaviour disorder [Recovering/Resolving]
  - Product dispensing error [Recovered/Resolved]
  - Accidental overdose [Recovered/Resolved]
  - Choking [Recovering/Resolving]
  - Depressed level of consciousness [Recovering/Resolving]

NARRATIVE: CASE EVENT DATE: 20210308
